FAERS Safety Report 17886647 (Version 1)
Quarter: 2020Q2

REPORT INFORMATION
  Report Type: Other
  Country: US (occurrence: US)
  Receive Date: 20200611
  Receipt Date: 20200611
  Transmission Date: 20200714
  Serious: No
  Sender: FDA-Public Use
  Company Number: US-ASCENT PHARMACEUTICALS, INC.-2085685

PATIENT
  Age: 12 Year
  Sex: Male
  Weight: 52.27 kg

DRUGS (1)
  1. METHYLPHENIDATE HYDROCHLORIDE EXTENDED-RELEASE [Suspect]
     Active Substance: METHYLPHENIDATE HYDROCHLORIDE
     Indication: ATTENTION DEFICIT HYPERACTIVITY DISORDER
     Route: 048
     Dates: start: 20200201, end: 20200229

REACTIONS (4)
  - Abnormal behaviour [Unknown]
  - Educational problem [Unknown]
  - Product substitution issue [Unknown]
  - Drug ineffective [Unknown]
